FAERS Safety Report 17444446 (Version 1)
Quarter: 2020Q1

REPORT INFORMATION
  Report Type: Spontaneous
  Country: US (occurrence: US)
  Receive Date: 20200207
  Receipt Date: 20200207
  Transmission Date: 20200409
  Serious: Yes (Hospitalization)
  Sender: FDA-Public Use
  Company Number: None

PATIENT
  Age: 54 Year
  Sex: Female

DRUGS (2)
  1. TAFINLAR [Suspect]
     Active Substance: DABRAFENIB MESYLATE
     Indication: MALIGNANT MELANOMA
     Dosage: ?          OTHER FREQUENCY:2CAPS, 2X/DAILY;?
     Route: 048
     Dates: start: 20190409
  2. MEKINIST [Suspect]
     Active Substance: TRAMETINIB DIMETHYL SULFOXIDE
     Dosage: ?          OTHER FREQUENCY:3TABS EVERYDAY ;?
     Route: 048
     Dates: start: 20190409

REACTIONS (2)
  - Burning sensation [None]
  - Vomiting [None]

NARRATIVE: CASE EVENT DATE: 20200206
